FAERS Safety Report 18737562 (Version 2)
Quarter: 2021Q1

REPORT INFORMATION
  Report Type: Spontaneous
  Country: US (occurrence: US)
  Receive Date: 20210113
  Receipt Date: 20210120
  Transmission Date: 20210419
  Serious: No
  Sender: FDA-Public Use
  Company Number: US-TRIS PHARMA, INC.-21US009237

PATIENT

DRUGS (5)
  1. NO COMPANY PRODUCT [Suspect]
     Active Substance: UNSPECIFIED INGREDIENT
     Indication: PRODUCT USED FOR UNKNOWN INDICATION
     Dosage: DRUG NOT ADMINISTERED
     Route: 065
  2. METHYLPHENIDATE HYDROCHLORIDE. [Suspect]
     Active Substance: METHYLPHENIDATE HYDROCHLORIDE
     Dosage: 10 MILLIGRAM, BID
     Route: 048
  3. METHYLPHENIDATE HYDROCHLORIDE. [Suspect]
     Active Substance: METHYLPHENIDATE HYDROCHLORIDE
     Dosage: 5 MILLIGRAM, QD
     Route: 048
  4. METHYLPHENIDATE HYDROCHLORIDE. [Suspect]
     Active Substance: METHYLPHENIDATE HYDROCHLORIDE
     Indication: ATTENTION DEFICIT HYPERACTIVITY DISORDER
     Dosage: 10 MILLIGRAM, TID
     Route: 048
  5. GENOTROPIN [Suspect]
     Active Substance: SOMATROPIN
     Indication: BLOOD GROWTH HORMONE DECREASED
     Dosage: 1.4 MILLIGRAM, QD
     Route: 065
     Dates: start: 2013

REACTIONS (2)
  - Soliloquy [Not Recovered/Not Resolved]
  - Crying [Not Recovered/Not Resolved]

NARRATIVE: CASE EVENT DATE: 202007
